APPROVED DRUG PRODUCT: BREVICON 21-DAY
Active Ingredient: ETHINYL ESTRADIOL; NORETHINDRONE
Strength: 0.035MG;0.5MG
Dosage Form/Route: TABLET;ORAL-21
Application: N017566 | Product #001
Applicant: ALLERGAN SALES LLC
Approved: Approved Prior to Jan 1, 1982 | RLD: No | RS: No | Type: DISCN